FAERS Safety Report 14325266 (Version 1)
Quarter: 2017Q4

REPORT INFORMATION
  Report Type: Spontaneous
  Country: US (occurrence: US)
  Receive Date: 20171224
  Receipt Date: 20171224
  Transmission Date: 20180321
  Serious: No
  Sender: FDA-Public Use
  Company Number: None

PATIENT
  Sex: Male
  Weight: 34.65 kg

DRUGS (10)
  1. FOSAMAX [Concomitant]
     Active Substance: ALENDRONATE SODIUM
  2. VITAMIN K [Concomitant]
     Active Substance: PHYTONADIONE
  3. FOCALIN XR [Concomitant]
     Active Substance: DEXMETHYLPHENIDATE HYDROCHLORIDE
  4. MELATONIN [Concomitant]
     Active Substance: MELATONIN
  5. EMFLAZA [Suspect]
     Active Substance: DEFLAZACORT
     Indication: DUCHENNE MUSCULAR DYSTROPHY
     Dosage: ?          QUANTITY:21 TABLET(S);?
     Route: 048
  6. CALCIUM [Concomitant]
     Active Substance: CALCIUM
  7. MIRALAX [Concomitant]
     Active Substance: POLYETHYLENE GLYCOL 3350
  8. COQ10 [Concomitant]
     Active Substance: UBIDECARENONE
  9. PROBIOTIC [Concomitant]
     Active Substance: PROBIOTICS NOS
  10. VITAMIN D3 [Concomitant]
     Active Substance: CHOLECALCIFEROL

REACTIONS (3)
  - Weight increased [None]
  - Product substitution issue [None]
  - Abnormal behaviour [None]

NARRATIVE: CASE EVENT DATE: 20170209
